FAERS Safety Report 20227709 (Version 1)
Quarter: 2021Q4

REPORT INFORMATION
  Report Type: Spontaneous
  Country: RU (occurrence: RU)
  Receive Date: 20211224
  Receipt Date: 20211224
  Transmission Date: 20220303
  Serious: Yes (Hospitalization)
  Sender: FDA-Public Use
  Company Number: RU-BoehringerIngelheim-2021-BI-144697

PATIENT
  Age: 48 Year
  Sex: Male

DRUGS (5)
  1. NINTEDANIB [Suspect]
     Active Substance: NINTEDANIB
     Indication: Interstitial lung disease
     Route: 048
     Dates: start: 20200921
  2. NINTEDANIB [Suspect]
     Active Substance: NINTEDANIB
     Indication: Polymyositis
  3. PREDNISOLONE [Concomitant]
     Active Substance: PREDNISOLONE
  4. MYCOPHENOLATE MOFETIL [Concomitant]
     Active Substance: MYCOPHENOLATE MOFETIL
     Dates: start: 2015, end: 2020
  5. MESNA [Concomitant]
     Active Substance: MESNA

REACTIONS (1)
  - COVID-19 [Recovered/Resolved]

NARRATIVE: CASE EVENT DATE: 20201201
